FAERS Safety Report 5398594-5 (Version None)
Quarter: 2007Q3

REPORT INFORMATION
  Report Type: 
  Country: None (occurrence: None)
  Receive Date: 20070726
  Receipt Date: 20070720
  Transmission Date: 20080115
  Serious: Yes (Life-Threatening, Other)
  Sender: FDA-Public Use
  Company Number: FR-ABBOTT-07P-056-0375186-00

PATIENT
  Age: 56 Year
  Sex: Male

DRUGS (8)
  1. NIMBEX [Suspect]
     Indication: ANAESTHESIA
     Route: 042
     Dates: start: 20070326, end: 20070326
  2. ORUDIS [Suspect]
     Indication: ANALGESIA
     Route: 050
     Dates: start: 20070321, end: 20070325
  3. HEPARIN-FRACTION, SODIUM SALT [Suspect]
     Indication: THROMBOSIS PROPHYLAXIS
     Route: 058
     Dates: start: 20070321, end: 20070324
  4. TETRAZEPAM [Suspect]
     Indication: DRUG USE FOR UNKNOWN INDICATION
     Route: 048
     Dates: start: 20070323, end: 20070325
  5. ACETAMINOPHEN [Suspect]
     Indication: PAIN
     Route: 042
     Dates: start: 20070321, end: 20070325
  6. TRIMEBUTINE MALEATE [Suspect]
     Indication: DRUG USE FOR UNKNOWN INDICATION
     Route: 042
     Dates: start: 20070323, end: 20070325
  7. REMIFENTANIL HYDROCHLORIDE [Suspect]
     Indication: ANAESTHESIA
     Route: 042
     Dates: start: 20070326, end: 20070326
  8. PROPOFOL [Suspect]
     Indication: ANAESTHESIA
     Route: 042
     Dates: start: 20070326, end: 20070326

REACTIONS (5)
  - DERMATITIS BULLOUS [None]
  - HYPOTENSION [None]
  - RASH ERYTHEMATOUS [None]
  - SKIN EXFOLIATION [None]
  - STEVENS-JOHNSON SYNDROME [None]
